FAERS Safety Report 25003086 (Version 2)
Quarter: 2025Q1

REPORT INFORMATION
  Report Type: Spontaneous
  Country: CA (occurrence: None)
  Receive Date: 20250224
  Receipt Date: 20250227
  Transmission Date: 20250409
  Serious: No
  Sender: ORION
  Company Number: CA-PFIZER INC-202500038431

PATIENT
  Age: 59 Year
  Sex: Male

DRUGS (2)
  1. METHOTREXATE [Suspect]
     Active Substance: METHOTREXATE
     Indication: Rheumatoid arthritis
     Dates: start: 202409
  2. SULFASALAZINE [Concomitant]
     Active Substance: SULFASALAZINE
     Indication: Rheumatoid arthritis
     Dates: start: 202411, end: 2024

REACTIONS (1)
  - Treatment failure [Unknown]
